FAERS Safety Report 9725514 (Version 1)
Quarter: 2013Q4

REPORT INFORMATION
  Report Type: Spontaneous
  Country: JP (occurrence: JP)
  Receive Date: 20131203
  Receipt Date: 20131203
  Transmission Date: 20140711
  Serious: Yes (Hospitalization)
  Sender: FDA-Public Use
  Company Number: PHHY2013JP139611

PATIENT
  Sex: Female

DRUGS (5)
  1. EXELON PATCH [Suspect]
     Indication: DEMENTIA ALZHEIMER^S TYPE
     Dosage: 18MG (9.5 MG/24 HOURS) DAILY
     Route: 062
  2. EXELON PATCH [Suspect]
     Dosage: 4.5MG (1.9 MG/24 HOURS) DAILY
     Route: 062
  3. EQUA [Concomitant]
     Dosage: UNK UKN, UNK
     Route: 048
  4. TAKEPRON [Concomitant]
     Dosage: UNK UKN, UNK
  5. BAYASPIRIN [Concomitant]
     Dosage: UNK UKN, UNK
     Route: 048

REACTIONS (3)
  - Septic shock [Recovered/Resolved]
  - Azotaemia [Recovered/Resolved]
  - Pyrexia [Recovered/Resolved]
